FAERS Safety Report 5917492-9 (Version None)
Quarter: 2008Q4

REPORT INFORMATION
  Report Type: 
  Country: None (occurrence: None)
  Receive Date: 20081009
  Receipt Date: 20080930
  Transmission Date: 20090506
  Serious: Yes (Hospitalization)
  Sender: FDA-Public Use
  Company Number: ENTC2008-0266

PATIENT
  Age: 84 Year
  Sex: Male

DRUGS (2)
  1. STALEVO 100 [Suspect]
     Indication: PARKINSON'S DISEASE
     Dosage: 4 TABS (100/25/200 MG) /DAY ORAL
     Route: 048
     Dates: start: 20060501
  2. AKINETON [Concomitant]

REACTIONS (1)
  - DEHYDRATION [None]
